FAERS Safety Report 7946945-7 (Version None)
Quarter: 2011Q4

REPORT INFORMATION
  Report Type: 
  Country: None (occurrence: None)
  Receive Date: 20111129
  Receipt Date: 20070601
  Transmission Date: 20120403
  Serious: Yes (Other)
  Sender: FDA-Public Use
  Company Number: PHHY2007US011390

PATIENT

DRUGS (9)
  1. GANCICLOVIR [Concomitant]
     Dosage: 1000 MG, TID
  2. NEORAL [Suspect]
     Indication: RENAL AND PANCREAS TRANSPLANT
     Dosage: UNK UKN, UNK
  3. SULFAMETHOXAZOLE [Concomitant]
     Dosage: UNK UKN, UNK
  4. VALGANCICLOVIR [Concomitant]
     Dosage: UNK UKN, UNK
  5. SIROLIMUS [Concomitant]
     Dosage: 5 MG/ DAY
  6. METHYLPREDNISOLONE [Concomitant]
     Indication: RENAL AND PANCREAS TRANSPLANT
     Dosage: 500 MG, UNK
  7. TRIMETHOPRIM [Concomitant]
     Dosage: UNK UKN, UNK
  8. ANTILYMPHOCYTE IMMUNOGLOBULIN (RABBIT) [Concomitant]
     Indication: RENAL AND PANCREAS TRANSPLANT
     Dosage: 1.5 MG/KG PER DAY, UNK
  9. METHYLPREDNISOLONE [Concomitant]
     Dosage: 25 MG, UNK

REACTIONS (3)
  - GRAFT THROMBOSIS [None]
  - GRAFT LOSS [None]
  - COMPLICATIONS OF TRANSPLANTED PANCREAS [None]
